FAERS Safety Report 9027868 (Version 1)
Quarter: 2013Q1

REPORT INFORMATION
  Report Type: Spontaneous
  Country: US (occurrence: None)
  Receive Date: 20130115
  Receipt Date: 20130115
  Transmission Date: 20140127
  Serious: Yes (Other)
  Sender: FDA-Public Use
  Company Number: None

PATIENT
  Age: 54 Year
  Sex: Female
  Weight: 58.97 kg

DRUGS (1)
  1. ZYRTEC [Suspect]
     Route: 048
     Dates: start: 20100701, end: 20130110

REACTIONS (3)
  - Pruritus generalised [None]
  - Eosinophil count increased [None]
  - Discomfort [None]
